FAERS Safety Report 11638962 (Version 1)
Quarter: 2015Q4

REPORT INFORMATION
  Report Type: Spontaneous
  Country: SE (occurrence: SE)
  Receive Date: 20151018
  Receipt Date: 20151018
  Transmission Date: 20160304
  Serious: Yes (Hospitalization)
  Sender: FDA-Public Use
  Company Number: SE-TEVA-601711ISR

PATIENT
  Age: 70 Year
  Sex: Male

DRUGS (3)
  1. SPIRONOLACTONE. [Suspect]
     Active Substance: SPIRONOLACTONE
  2. ENALAPRIL [Suspect]
     Active Substance: ENALAPRIL
  3. KALEORID [Suspect]
     Active Substance: POTASSIUM CHLORIDE

REACTIONS (1)
  - Blood creatine increased [Unknown]
